FAERS Safety Report 15172289 (Version 1)
Quarter: 2018Q3

REPORT INFORMATION
  Report Type: Spontaneous
  Country: US (occurrence: US)
  Receive Date: 20180622
  Receipt Date: 20180622
  Transmission Date: 20181010
  Serious: No
  Sender: FDA-Public Use
  Company Number: None

PATIENT
  Age: 68 Year
  Sex: Female

DRUGS (4)
  1. LOSARTAN. [Concomitant]
     Active Substance: LOSARTAN
  2. OPSUMIT [Concomitant]
     Active Substance: MACITENTAN
  3. METOPROLOL. [Concomitant]
     Active Substance: METOPROLOL
  4. ADCIRCA [Suspect]
     Active Substance: TADALAFIL
     Route: 048
     Dates: start: 20180111, end: 20180526

REACTIONS (2)
  - Syncope [None]
  - Oedema peripheral [None]

NARRATIVE: CASE EVENT DATE: 20180526
